FAERS Safety Report 7108439-0 (Version None)
Quarter: 2010Q4

REPORT INFORMATION
  Report Type: 
  Country: None (occurrence: None)
  Receive Date: 20101117
  Receipt Date: 20101109
  Transmission Date: 20110411
  Serious: Yes (Other)
  Sender: FDA-Public Use
  Company Number: B0680007A

PATIENT
  Age: 29 Year
  Sex: Male

DRUGS (2)
  1. FLIXOTIDE [Suspect]
     Dosage: 100MCG TWICE PER DAY
     Route: 055
     Dates: end: 20101001
  2. FLIXOTIDE [Suspect]
     Indication: ASTHMA
     Dosage: 100MCG TWICE PER DAY
     Route: 055
     Dates: start: 20101001, end: 20101015

REACTIONS (2)
  - ASTHMA [None]
  - PRODUCT QUALITY ISSUE [None]
